FAERS Safety Report 16639918 (Version 1)
Quarter: 2019Q3

REPORT INFORMATION
  Report Type: Report from Study
  Country: ES (occurrence: ES)
  Receive Date: 20190727
  Receipt Date: 20190727
  Transmission Date: 20191004
  Serious: Yes (Death, Hospitalization)
  Sender: FDA-Public Use
  Company Number: ES-ACCORD-149052

PATIENT
  Age: 96 Year
  Sex: Male

DRUGS (6)
  1. SPIRONOLACTONE. [Suspect]
     Active Substance: SPIRONOLACTONE
     Indication: PRODUCT USED FOR UNKNOWN INDICATION
     Dosage: 1-0-0
     Route: 048
     Dates: end: 20180709
  2. LOSARTAN. [Suspect]
     Active Substance: LOSARTAN
     Indication: HYPERTENSION
     Dosage: 1-0-0, STRENGTH: 25 MG
     Route: 048
     Dates: end: 20180709
  3. SINTROM [Concomitant]
     Active Substance: ACENOCOUMAROL
     Dosage: 1 MG 1C/24 HRS, STRENGTH: 1 MG
     Route: 048
  4. SEGURIL [Suspect]
     Active Substance: FUROSEMIDE
     Indication: PRODUCT USED FOR UNKNOWN INDICATION
     Dosage: 20 MG AMPOULES 2 ML), 1 INJECTABLE (20 MILLIGRAMS), IV, DE-CO-CE (09H, 13H, 20H)
     Route: 042
     Dates: start: 20180710
  5. DEPRAX [Concomitant]
     Dosage: 100 MG 0-0-1, STRENGTH: 100 MG
     Route: 048
  6. FUROSEMIDE. [Suspect]
     Active Substance: FUROSEMIDE
     Indication: PRODUCT USED FOR UNKNOWN INDICATION
     Dosage: 40 MG 1-0-1-0,  IN PATIENTS, THE BIOAVAILABILITY OF THE DRUG IS INFLUENCED BY VARIOUS FACTORS
     Route: 048
     Dates: end: 20180709

REACTIONS (1)
  - Syncope [Recovered/Resolved]
